FAERS Safety Report 8991244 (Version 1)
Quarter: 2012Q4

REPORT INFORMATION
  Report Type: Report from Study
  Country: CA (occurrence: CA)
  Receive Date: 20121231
  Receipt Date: 20121231
  Transmission Date: 20130627
  Serious: Yes (Other)
  Sender: FDA-Public Use
  Company Number: CA-ROCHE-1173112

PATIENT
  Sex: Male
  Weight: 35.84 kg

DRUGS (3)
  1. OMALIZUMAB [Suspect]
     Indication: ASTHMA
     Route: 065
     Dates: start: 20090930
  2. OMALIZUMAB [Suspect]
     Route: 058
     Dates: start: 20090902
  3. OMALIZUMAB [Suspect]
     Route: 058
     Dates: start: 20100120

REACTIONS (6)
  - Blood pressure decreased [Unknown]
  - Body temperature decreased [Unknown]
  - Hypersensitivity [Unknown]
  - Feeling cold [Unknown]
  - Rhinorrhoea [Unknown]
  - Heart rate decreased [Unknown]
